FAERS Safety Report 9283235 (Version 1)
Quarter: 2013Q2

REPORT INFORMATION
  Report Type: Spontaneous
  Country: US (occurrence: US)
  Receive Date: 20130510
  Receipt Date: 20130510
  Transmission Date: 20140414
  Serious: No
  Sender: FDA-Public Use
  Company Number: US-GLAXOSMITHKLINE-A0990779A

PATIENT
  Age: 45 Year
  Sex: Female

DRUGS (9)
  1. TYKERB [Suspect]
     Indication: BREAST CANCER
     Dosage: 5CAP PER DAY
     Route: 048
     Dates: start: 20120821
  2. LETROZOLE [Concomitant]
  3. METFORMIN [Concomitant]
  4. GLIPIZIDE [Concomitant]
  5. LORATADINE [Concomitant]
  6. MIRTAZAPINE [Concomitant]
  7. CLINDAMYCIN [Concomitant]
  8. TRAMADOL [Concomitant]
  9. ALEVE [Concomitant]

REACTIONS (2)
  - Rash pruritic [Not Recovered/Not Resolved]
  - Local swelling [Unknown]
